FAERS Safety Report 6942603-6 (Version None)
Quarter: 2010Q3

REPORT INFORMATION
  Report Type: 
  Country: None (occurrence: None)
  Receive Date: 20100811
  Receipt Date: 20100805
  Transmission Date: 20110219
  Serious: Yes (Life-Threatening, Hospitalization, Disabling, Other)
  Sender: FDA-Public Use
  Company Number: US-144977

PATIENT
  Age: 36 Year
  Sex: Female
  Weight: 47.6 kg

DRUGS (12)
  1. HEPAGAM B [Suspect]
     Indication: HEPATITIS B VIRUS TEST POSITIVE
     Dosage: 2000 IU TOTAL INTRAVENOUS DRIP
     Route: 041
     Dates: start: 20081125, end: 20081125
  2. METHYLPREDNISOLONE [Concomitant]
  3. TACROLIMUS [Concomitant]
  4. MYCOPHENOLATE MOFETIL [Concomitant]
  5. URSODIOL [Concomitant]
  6. BACTRIM [Concomitant]
  7. FLUCONAZOLE [Concomitant]
  8. GANCICLOVIR [Concomitant]
  9. MULTI-VITAMIN [Concomitant]
  10. MORPHINE [Concomitant]
  11. REGULAR INSULIN [Concomitant]
  12. PANTOPRAZOLE SODIUM [Concomitant]

REACTIONS (5)
  - ANAPHYLACTOID REACTION [None]
  - CONFUSIONAL STATE [None]
  - DIZZINESS [None]
  - DRUG INTERACTION [None]
  - SINUS TACHYCARDIA [None]
